FAERS Safety Report 7577915-9 (Version None)
Quarter: 2011Q2

REPORT INFORMATION
  Report Type: 
  Country: None (occurrence: None)
  Receive Date: 20110628
  Receipt Date: 20110621
  Transmission Date: 20111010
  Serious: Yes (Other)
  Sender: FDA-Public Use
  Company Number: PHHY2011US50430

PATIENT
  Sex: Male

DRUGS (1)
  1. TASIGNA [Suspect]
     Dosage: 300 MG, BID
     Route: 048

REACTIONS (5)
  - ABASIA [None]
  - LIPASE INCREASED [None]
  - BLOOD COUNT ABNORMAL [None]
  - BLOOD AMYLASE INCREASED [None]
  - PANCREATIC ENZYMES ABNORMAL [None]
